FAERS Safety Report 25104725 (Version 1)
Quarter: 2025Q1

REPORT INFORMATION
  Report Type: Spontaneous
  Country: BE (occurrence: BE)
  Receive Date: 20250321
  Receipt Date: 20250321
  Transmission Date: 20250408
  Serious: Yes (Other)
  Sender: ROCHE
  Company Number: BE-002147023-NVSC2025BE044886

PATIENT
  Age: 72 Year
  Sex: Male

DRUGS (4)
  1. LUCENTIS [Suspect]
     Active Substance: RANIBIZUMAB
     Indication: Product used for unknown indication
     Route: 050
  2. LUCENTIS [Suspect]
     Active Substance: RANIBIZUMAB
     Route: 050
  3. EYLEA [Suspect]
     Active Substance: AFLIBERCEPT
     Indication: Product used for unknown indication
     Route: 050
  4. EYLEA [Suspect]
     Active Substance: AFLIBERCEPT
     Route: 050

REACTIONS (5)
  - Mucous membrane pemphigoid [Unknown]
  - Serous retinal detachment [Unknown]
  - Visual acuity reduced [Unknown]
  - Eye haemorrhage [Unknown]
  - Drug ineffective [Unknown]

NARRATIVE: CASE EVENT DATE: 20170601
